FAERS Safety Report 25202017 (Version 5)
Quarter: 2025Q3

REPORT INFORMATION
  Report Type: Report from Study
  Country: US (occurrence: US)
  Receive Date: 20250416
  Receipt Date: 20250923
  Transmission Date: 20251020
  Serious: Yes (Other)
  Sender: TAKEDA
  Company Number: US-TAKEDA-US202019696

PATIENT
  Age: 24 Year
  Sex: Female
  Weight: 54 kg

DRUGS (18)
  1. HUMAN IMMUNOGLOBULIN G [Suspect]
     Active Substance: HUMAN IMMUNOGLOBULIN G
     Indication: Immunodeficiency common variable
     Dosage: 7.5 GRAM, 1/WEEK
  2. HUMAN IMMUNOGLOBULIN G [Suspect]
     Active Substance: HUMAN IMMUNOGLOBULIN G
     Indication: Primary immunodeficiency syndrome
  3. EPINEPHRINE [Concomitant]
     Active Substance: EPINEPHRINE
  4. ACETAMINOPHEN [Concomitant]
     Active Substance: ACETAMINOPHEN
  5. OXYBUTYNIN CHLORIDE [Concomitant]
     Active Substance: OXYBUTYNIN CHLORIDE
  6. ACYCLOVIR [Concomitant]
     Active Substance: ACYCLOVIR
  7. MAGNESIUM [Concomitant]
     Active Substance: MAGNESIUM
  8. ALBUTEROL SULFATE [Concomitant]
     Active Substance: ALBUTEROL SULFATE
  9. LIDOCAINE [Concomitant]
     Active Substance: LIDOCAINE
  10. DIPHENHYDRAMINE HYDROCHLORIDE [Concomitant]
     Active Substance: DIPHENHYDRAMINE HYDROCHLORIDE
  11. CETIRIZINE HCL [Concomitant]
     Active Substance: CETIRIZINE HYDROCHLORIDE
  12. FERROUS SULFATE [Concomitant]
     Active Substance: FERROUS SULFATE
  13. VITAMIN D3 [Concomitant]
     Active Substance: CHOLECALCIFEROL
  14. FLECAINIDE ACETATE [Concomitant]
     Active Substance: FLECAINIDE ACETATE
  15. ALBUTEROL SULFATE [Concomitant]
     Active Substance: ALBUTEROL SULFATE
  16. NADOLOL [Concomitant]
     Active Substance: NADOLOL
  17. WELLBUTRIN XL [Concomitant]
     Active Substance: BUPROPION HYDROCHLORIDE
  18. SUDAFED [Concomitant]
     Active Substance: PSEUDOEPHEDRINE HYDROCHLORIDE

REACTIONS (12)
  - Arrhythmia [Unknown]
  - Cortisol decreased [Unknown]
  - Infectious mononucleosis [Unknown]
  - Inappropriate schedule of product administration [Unknown]
  - Cardiac disorder [Unknown]
  - Ehlers-Danlos syndrome [Unknown]
  - Product use issue [Unknown]
  - Product dose omission issue [Unknown]
  - Insurance issue [Unknown]
  - Ear infection [Unknown]
  - Somnolence [Unknown]
  - Fatigue [Unknown]

NARRATIVE: CASE EVENT DATE: 20250319
